FAERS Safety Report 22085474 (Version 1)
Quarter: 2023Q1

REPORT INFORMATION
  Report Type: Spontaneous
  Country: US (occurrence: None)
  Receive Date: 20230310
  Receipt Date: 20230310
  Transmission Date: 20230417
  Serious: Yes (Hospitalization)
  Sender: FDA-Public Use
  Company Number: None

PATIENT
  Age: 74 Year
  Sex: Male

DRUGS (1)
  1. DIMETHYL FUMARATE [Suspect]
     Active Substance: DIMETHYL FUMARATE
     Dosage: 240 MG BID ORAL
     Route: 048
     Dates: start: 20210123

REACTIONS (4)
  - Localised infection [None]
  - Osteomyelitis [None]
  - Peripheral swelling [None]
  - Blood glucose increased [None]

NARRATIVE: CASE EVENT DATE: 20230303
